FAERS Safety Report 16912400 (Version 1)
Quarter: 2019Q4

REPORT INFORMATION
  Report Type: Report from Study
  Country: None (occurrence: GR)
  Receive Date: 20191014
  Receipt Date: 20191014
  Transmission Date: 20200122
  Serious: Yes (Hospitalization)
  Sender: FDA-Public Use
  Company Number: GR-ABBVIE-19K-066-2961113-00

PATIENT
  Sex: Male
  Weight: 60 kg

DRUGS (2)
  1. MIRAPEXIN [Concomitant]
     Active Substance: PRAMIPEXOLE
     Indication: PARKINSON^S DISEASE
     Route: 048
  2. DUODOPA [Suspect]
     Active Substance: CARBIDOPA\LEVODOPA
     Indication: PARKINSON^S DISEASE
     Dosage: MORNING DOSE: 10.8ML; CONTINUOUS RATE: 2.6ML/H; EXTRA DOSE: 1.5ML
     Route: 050
     Dates: start: 20190307

REACTIONS (4)
  - Fatigue [Recovering/Resolving]
  - Haematocrit decreased [Recovering/Resolving]
  - Asthenia [Recovering/Resolving]
  - Weight decreased [Not Recovered/Not Resolved]

NARRATIVE: CASE EVENT DATE: 2019
